FAERS Safety Report 12246397 (Version 1)
Quarter: 2016Q2

REPORT INFORMATION
  Report Type: Spontaneous
  Country: FR (occurrence: FR)
  Receive Date: 20160407
  Receipt Date: 20160407
  Transmission Date: 20160815
  Serious: Yes (Other)
  Sender: FDA-Public Use
  Company Number: FR-BAXTER-2016BAX017396

PATIENT
  Age: 21 Year
  Sex: Male

DRUGS (2)
  1. ENDOXAN 1000 MG, POUDRE POUR SOLUTION INJECTABLE [Suspect]
     Active Substance: CYCLOPHOSPHAMIDE
     Indication: HENOCH-SCHONLEIN PURPURA
     Dosage: SINGLE INTAKE INFUSION
     Route: 065
     Dates: start: 20160216, end: 20160216
  2. MORPHINE [Suspect]
     Active Substance: MORPHINE
     Indication: ARTHRALGIA
     Route: 065
     Dates: start: 20160215

REACTIONS (4)
  - Vomiting [Recovered/Resolved]
  - Localised oedema [Recovered/Resolved]
  - Diarrhoea [Recovered/Resolved]
  - Pyrexia [Recovered/Resolved]

NARRATIVE: CASE EVENT DATE: 20160216
